FAERS Safety Report 13276692 (Version 1)
Quarter: 2017Q1

REPORT INFORMATION
  Report Type: Spontaneous
  Country: US (occurrence: US)
  Receive Date: 20170228
  Receipt Date: 20170228
  Transmission Date: 20170428
  Serious: Yes (Hospitalization)
  Sender: FDA-Public Use
  Company Number: None

PATIENT
  Sex: Female

DRUGS (5)
  1. PREDNISONE. [Suspect]
     Active Substance: PREDNISONE
  2. OMEPRAZOLE. [Suspect]
     Active Substance: OMEPRAZOLE
  3. METRONIDAZOLE. [Suspect]
     Active Substance: METRONIDAZOLE
  4. CEFUROXIME. [Suspect]
     Active Substance: CEFUROXIME
  5. AMOXICILLIN. [Suspect]
     Active Substance: AMOXICILLIN

REACTIONS (7)
  - White blood cell count increased [None]
  - Abdominal discomfort [None]
  - Blood pressure decreased [None]
  - Diarrhoea [None]
  - Clostridium difficile infection [None]
  - Dizziness [None]
  - Pyrexia [None]

NARRATIVE: CASE EVENT DATE: 20150526
